FAERS Safety Report 6994622-1 (Version None)
Quarter: 2010Q3

REPORT INFORMATION
  Report Type: 
  Country: None (occurrence: None)
  Receive Date: 20100916
  Receipt Date: 20100916
  Transmission Date: 20110219
  Serious: Yes (Life-Threatening, Hospitalization)
  Sender: FDA-Public Use
  Company Number: None

PATIENT
  Age: 58 Year
  Sex: Male
  Weight: 99.7913 kg

DRUGS (1)
  1. NJOY ELECTRONIC CIGARETTES NJOY [Suspect]
     Dates: start: 20100301, end: 20100405

REACTIONS (5)
  - CARDIAC FAILURE CONGESTIVE [None]
  - HEART RATE ABNORMAL [None]
  - MALAISE [None]
  - PNEUMONIA [None]
  - PULMONARY OEDEMA [None]
